FAERS Safety Report 23508876 (Version 3)
Quarter: 2024Q2

REPORT INFORMATION
  Report Type: Spontaneous
  Country: US (occurrence: US)
  Receive Date: 20240209
  Receipt Date: 20240426
  Transmission Date: 20240715
  Serious: Yes (Hospitalization, Other)
  Sender: FDA-Public Use
  Company Number: US-GILEAD-2024-0661563

PATIENT
  Age: 69 Year
  Sex: Female
  Weight: 85.5 kg

DRUGS (8)
  1. TECARTUS [Suspect]
     Active Substance: BREXUCABTAGENE AUTOLEUCEL
     Indication: Mantle cell lymphoma
     Dosage: 68 ML (MAXIMUM 2 X 10^8 ANTI CD-19 CAR-T CELLS IN 5% DMSO) (DAY 0)
     Route: 042
     Dates: start: 20231204, end: 20231204
  2. ACYCLOVIR [Concomitant]
     Active Substance: ACYCLOVIR
  3. MAALOX ANTACID [Concomitant]
     Active Substance: ALUMINUM HYDROXIDE\DIMETHICONE\MAGNESIUM HYDROXIDE
  4. ALLOPURINOL [Concomitant]
     Active Substance: ALLOPURINOL
  5. ALTEPLASE [Concomitant]
     Active Substance: ALTEPLASE
  6. APIXABAN [Concomitant]
     Active Substance: APIXABAN
  7. KEPPRA [Concomitant]
     Active Substance: LEVETIRACETAM
  8. ELIQUIS [Concomitant]
     Active Substance: APIXABAN

REACTIONS (2)
  - Cytokine release syndrome [Recovered/Resolved]
  - Immune effector cell-associated neurotoxicity syndrome [Recovered/Resolved]

NARRATIVE: CASE EVENT DATE: 20231205
